FAERS Safety Report 5606787-4 (Version None)
Quarter: 2008Q1

REPORT INFORMATION
  Report Type: 
  Country: None (occurrence: None)
  Receive Date: 20080129
  Receipt Date: 20080121
  Transmission Date: 20080703
  Serious: Yes (Other)
  Sender: FDA-Public Use
  Company Number: GB-RANBAXY-2008RR-12723

PATIENT

DRUGS (7)
  1. SIMVASTATIN [Suspect]
     Indication: HYPERCHOLESTEROLAEMIA
     Dosage: 1 DF, QD
     Route: 048
     Dates: start: 20060103, end: 20080110
  2. BENDROFLUMETHIAZIDE [Concomitant]
     Dosage: 1 DF, QD
     Route: 065
     Dates: start: 20050308
  3. DOCOSAHEXAENOIC ACID [Concomitant]
     Dosage: 2 DF, QD
     Route: 065
     Dates: start: 20060303
  4. EICOSAPENTAENOIC ACID [Concomitant]
     Dosage: 2 DF, QD
     Route: 065
     Dates: start: 20060303
  5. EZETIMIBE [Concomitant]
     Dosage: 1 DF, QD
     Route: 065
     Dates: start: 20060303
  6. LEVOTHYROXINE SODIUM [Concomitant]
     Dosage: 1 DF, QD
     Dates: start: 20060712
  7. LEVOTHYROXINE SODIUM [Concomitant]
     Dosage: 2 DF, QD
     Dates: start: 20060420

REACTIONS (2)
  - AGGRESSION [None]
  - DEPRESSION [None]
